FAERS Safety Report 5706412-8 (Version None)
Quarter: 2008Q2

REPORT INFORMATION
  Report Type: 
  Country: None (occurrence: None)
  Receive Date: 20080411
  Receipt Date: 20080327
  Transmission Date: 20081010
  Serious: Yes (Life-Threatening, Other)
  Sender: FDA-Public Use
  Company Number: 2008BI003955

PATIENT
  Age: 41 Year
  Sex: Female

DRUGS (6)
  1. ZEVALIN [Suspect]
     Indication: B-CELL LYMPHOMA
     Dosage: 803.3 MBQ; 1X;IV
     Route: 042
     Dates: start: 20080117, end: 20080117
  2. RITUXIMAB [Concomitant]
  3. CARMUSTINE [Concomitant]
  4. CYTARABINE [Concomitant]
  5. ETOPOSIDE [Concomitant]
  6. MELPHALAN [Concomitant]

REACTIONS (2)
  - ACUTE RESPIRATORY DISTRESS SYNDROME [None]
  - NEUTROPENIC COLITIS [None]
